FAERS Safety Report 16583785 (Version 1)
Quarter: 2019Q3

REPORT INFORMATION
  Report Type: Spontaneous
  Country: US (occurrence: US)
  Receive Date: 20190603
  Receipt Date: 20190603
  Transmission Date: 20191004
  Serious: Yes (Other)
  Sender: FDA-Public Use
  Company Number: None

PATIENT
  Age: 85 Year

DRUGS (1)
  1. CIPROFLOXACIN HCL 500 MG TA [Suspect]
     Active Substance: CIPROFLOXACIN HYDROCHLORIDE
     Indication: BACTERIAL INFECTION
     Dosage: ?          QUANTITY:1 DF DOSAGE FORM;?
     Route: 048
     Dates: start: 20190508, end: 20190508

REACTIONS (11)
  - Mood altered [None]
  - Depression [None]
  - Dizziness [None]
  - Hallucination [None]
  - Increased appetite [None]
  - Logorrhoea [None]
  - Confusional state [None]
  - Feeling abnormal [None]
  - Anxiety [None]
  - Aphasia [None]
  - Insomnia [None]

NARRATIVE: CASE EVENT DATE: 20190508
